FAERS Safety Report 23294450 (Version 2)
Quarter: 2024Q1

REPORT INFORMATION
  Report Type: Report from Study
  Country: CN (occurrence: CN)
  Receive Date: 20231213
  Receipt Date: 20240117
  Transmission Date: 20240410
  Serious: No
  Sender: FDA-Public Use
  Company Number: CN-PFIZER INC-PV202300200778

PATIENT
  Age: 64 Year
  Sex: Male
  Weight: 46 kg

DRUGS (17)
  1. NIRMATRELVIR\RITONAVIR [Suspect]
     Active Substance: NIRMATRELVIR\RITONAVIR
     Indication: COVID-19
     Dosage: [NIRMATRELVIR 300MG]/[RITONAVIR 100MG], Q12H
     Route: 048
     Dates: start: 20220522, end: 20220527
  2. NIRMATRELVIR\RITONAVIR [Suspect]
     Active Substance: NIRMATRELVIR\RITONAVIR
     Dosage: [NIRMATRELVIR 300MG]/[RITONAVIR 100MG], BID
     Route: 048
     Dates: start: 20220531, end: 20220601
  3. METOPROLOL SUCCINATE [Concomitant]
     Active Substance: METOPROLOL SUCCINATE
     Indication: Heart rate increased
     Dosage: EXTENDED-RELEASE TABLET
     Route: 048
     Dates: start: 20220522, end: 20220529
  4. METOPROLOL SUCCINATE [Concomitant]
     Active Substance: METOPROLOL SUCCINATE
     Dosage: EXTENDED-RELEASE TABLET
     Route: 048
     Dates: start: 20220529, end: 20220608
  5. LEUCOGEN [Concomitant]
     Active Substance: LEUCOGEN
     Indication: White blood cell count decreased
     Dosage: UNK
     Route: 048
     Dates: start: 20220526, end: 20220530
  6. LEUCOGEN [Concomitant]
     Active Substance: LEUCOGEN
     Dosage: UNK
     Route: 048
     Dates: start: 20220601, end: 20220608
  7. POTASSIUM CHLORIDE [Concomitant]
     Active Substance: POTASSIUM CHLORIDE
     Indication: Mineral supplementation
     Dosage: EXTENDED-RELEASE TABLETS
     Route: 048
     Dates: start: 20220525, end: 20220530
  8. METHIMAZOLE [Concomitant]
     Active Substance: METHIMAZOLE
     Indication: White blood cell count decreased
     Dosage: UNK
     Route: 048
     Dates: start: 20220526, end: 20220603
  9. FERROUS SUCCINATE [Concomitant]
     Active Substance: FERROUS SUCCINATE
     Dosage: SUSTAINED RELEASE TABLETS
     Route: 048
     Dates: start: 20220528, end: 20220608
  10. VITAMIN C [Concomitant]
     Active Substance: ASCORBIC ACID
     Dosage: UNK
     Route: 048
     Dates: start: 20220530, end: 20220603
  11. RABEPRAZOLE SODIUM [Concomitant]
     Active Substance: RABEPRAZOLE SODIUM
     Indication: Vomiting
     Dosage: ENTERIC-COATED CAPSULES
     Route: 048
     Dates: start: 20220530, end: 20220603
  12. TORSEMIDE [Concomitant]
     Active Substance: TORSEMIDE
     Indication: Polyuria
     Dosage: UNK
     Route: 048
     Dates: start: 20220601, end: 20220608
  13. FOSINOPRIL SODIUM [Concomitant]
     Active Substance: FOSINOPRIL SODIUM
     Indication: Cardiac failure
     Dosage: UNK
     Route: 048
     Dates: start: 20220602, end: 20220608
  14. FOSINOPRIL SODIUM [Concomitant]
     Active Substance: FOSINOPRIL SODIUM
     Indication: Hypertension
  15. MUCOPOLYSACCHARIDE POLYSULFATE [Concomitant]
     Dosage: UNK
     Route: 061
     Dates: start: 20220527
  16. ENOXAPARIN SODIUM [Concomitant]
     Active Substance: ENOXAPARIN SODIUM
     Indication: Procoagulant therapy
     Dosage: UNK
     Route: 058
     Dates: start: 20220528, end: 20220603
  17. DABIGATRAN [Concomitant]
     Active Substance: DABIGATRAN
     Indication: Procoagulant therapy
     Dosage: ESTER CAPSULES
     Route: 048
     Dates: start: 20220604

REACTIONS (1)
  - Overdose [Unknown]
